APPROVED DRUG PRODUCT: ROBAXISAL
Active Ingredient: ASPIRIN; METHOCARBAMOL
Strength: 325MG;400MG
Dosage Form/Route: TABLET;ORAL
Application: N012281 | Product #001
Applicant: AH ROBINS CO
Approved: Approved Prior to Jan 1, 1982 | RLD: Yes | RS: No | Type: DISCN